FAERS Safety Report 8791634 (Version 1)
Quarter: 2012Q4

REPORT INFORMATION
  Report Type: 
  Country: BR (occurrence: BR)
  Receive Date: 20120918
  Receipt Date: 20120918
  Transmission Date: 20130627
  Serious: Yes (Other)
  Sender: FDA-Public Use
  Company Number: BR-SANOFI-AVENTIS-2012SA066173

PATIENT
  Age: 57 Year
  Sex: Female
  Weight: 67 kg

DRUGS (14)
  1. APIDRA [Suspect]
     Indication: TYPE 2 DIABETES MELLITUS
     Dosage: Dose: 6-8-8
     Route: 058
     Dates: start: 2008
  2. LANTUS [Suspect]
     Indication: TYPE 2 DIABETES MELLITUS
     Route: 058
     Dates: start: 2008
  3. BROMAZEPAM [Concomitant]
     Indication: DEPRESSION
     Route: 048
     Dates: start: 2011
  4. CLONAZEPAM [Concomitant]
     Indication: DEPRESSION
     Route: 048
     Dates: start: 2011
  5. CHLOROQUINE [Concomitant]
     Indication: ARTHROSIS
     Route: 048
     Dates: start: 201204
  6. DOMPERIDONE [Concomitant]
     Indication: GASTRIC DISORDER
     Route: 048
     Dates: start: 201204
  7. FLUOXETINE [Concomitant]
     Indication: DEPRESSION
     Route: 048
     Dates: start: 2011
  8. PENTOXIFYLLINE [Concomitant]
     Indication: CAROTID ARTERY DISEASE NOS
     Route: 048
     Dates: start: 201203
  9. HYDROXYCHLOROQUINE [Concomitant]
     Indication: RHEUMATISM
     Route: 048
     Dates: start: 201204
  10. IBUPROFEN [Concomitant]
     Indication: ARTHROSIS
     Route: 048
     Dates: start: 201202
  11. OMEPRAZOLE [Concomitant]
     Indication: GASTRIC DISORDER
     Route: 048
     Dates: start: 201205
  12. PURAN T4 [Concomitant]
     Indication: THYROID DISORDER
     Route: 048
     Dates: start: 201204
  13. RANITIDINE [Concomitant]
     Indication: GASTRIC DISORDER
     Route: 048
     Dates: start: 201204
  14. LOSARTAN [Concomitant]
     Indication: BLOOD PRESSURE HIGH
     Route: 048
     Dates: start: 201204

REACTIONS (8)
  - Cataract [Not Recovered/Not Resolved]
  - Hearing impaired [Not Recovered/Not Resolved]
  - Hypoglycaemia [Unknown]
  - Hypoaesthesia [Unknown]
  - Dizziness [Unknown]
  - Sluggishness [Unknown]
  - Muscular weakness [Unknown]
  - Incorrect dose administered [Unknown]
